FAERS Safety Report 9871425 (Version 3)
Quarter: 2014Q2

REPORT INFORMATION
  Report Type: Report from Study
  Country: TN (occurrence: TN)
  Receive Date: 20140205
  Receipt Date: 20140504
  Transmission Date: 20141212
  Serious: Yes (Other)
  Sender: FDA-Public Use
  Company Number: TN-US-EMD SERONO, INC.-7266209

PATIENT
  Age: 43 Year
  Sex: Female

DRUGS (10)
  1. REBIF [Suspect]
     Indication: MULTIPLE SCLEROSIS
     Route: 058
     Dates: start: 20130903
  2. ANGIOTEC [Concomitant]
     Indication: HYPERTENSION
     Route: 048
     Dates: start: 200908
  3. PROCARDIN                          /00042901/ [Concomitant]
     Indication: CEREBROVASCULAR ACCIDENT
     Route: 048
     Dates: start: 201209
  4. DEPAKINE CHRONO                    /01294701/ [Concomitant]
     Indication: MENTAL DISORDER
     Route: 048
     Dates: start: 201310
  5. FLUOXETINE [Concomitant]
     Indication: MENTAL DISORDER
     Dates: start: 201310
  6. TEMESTA                            /00273201/ [Concomitant]
     Indication: MENTAL DISORDER
     Dates: start: 201310
  7. VITAMIN A                          /00056001/ [Concomitant]
     Indication: PRODUCT USED FOR UNKNOWN INDICATION
     Dates: start: 201309
  8. VITAMIN B                          /90046501/ [Concomitant]
     Indication: PRODUCT USED FOR UNKNOWN INDICATION
     Dates: start: 201309
  9. VITAMIN C                          /00008001/ [Concomitant]
     Indication: PRODUCT USED FOR UNKNOWN INDICATION
     Dates: start: 201309
  10. VITAMIN E                          /00110501/ [Concomitant]
     Indication: PRODUCT USED FOR UNKNOWN INDICATION
     Dates: start: 201309

REACTIONS (4)
  - Angina pectoris [Recovered/Resolved]
  - Alopecia [Not Recovered/Not Resolved]
  - Paraesthesia [Not Recovered/Not Resolved]
  - Fear of injection [Recovering/Resolving]
